FAERS Safety Report 19818696 (Version 1)
Quarter: 2021Q3

REPORT INFORMATION
  Report Type: Spontaneous
  Country: CA (occurrence: CA)
  Receive Date: 20210912
  Receipt Date: 20210912
  Transmission Date: 20211014
  Serious: Yes (Life-Threatening, Hospitalization)
  Sender: FDA-Public Use
  Company Number: CA-TEVA-2021-CA-1951015

PATIENT
  Age: 73 Year
  Sex: Male
  Weight: 54 kg

DRUGS (10)
  1. CISPLATIN INJECTION [Suspect]
     Active Substance: CISPLATIN
     Indication: LARYNGEAL CANCER
  2. ATENOLOL TABLET. BP [Concomitant]
  3. ATORVASTATIN [Concomitant]
     Active Substance: ATORVASTATIN
  4. METOCLOPRAMIDE. [Concomitant]
     Active Substance: METOCLOPRAMIDE
  5. ONDANSETRON [Concomitant]
     Active Substance: ONDANSETRON
  6. COD LIVER OIL [Concomitant]
     Active Substance: COD LIVER OIL
  7. CISPLATIN INJECTION [Suspect]
     Active Substance: CISPLATIN
  8. CALCIUM CARBONATE. [Concomitant]
     Active Substance: CALCIUM CARBONATE
  9. MAGIC MOUTHWASH (NYSTATIN) [Concomitant]
     Active Substance: NYSTATIN
  10. ACETYL SALICYLIC ACID [Concomitant]
     Active Substance: ASPIRIN
     Route: 065

REACTIONS (2)
  - Acute kidney injury [Recovered/Resolved]
  - Blood creatinine increased [Recovered/Resolved]
